FAERS Safety Report 16715995 (Version 3)
Quarter: 2019Q3

REPORT INFORMATION
  Report Type: Spontaneous
  Country: US (occurrence: US)
  Receive Date: 20190819
  Receipt Date: 20190926
  Transmission Date: 20191005
  Serious: No
  Sender: FDA-Public Use
  Company Number: US-PFIZER INC-2019350934

PATIENT
  Age: 62 Year
  Sex: Male
  Weight: 90.7 kg

DRUGS (4)
  1. ADVIL LIQUI-GELS [Suspect]
     Active Substance: IBUPROFEN
     Dosage: 20 MG, 1X/DAY
     Dates: start: 2009
  2. ADVIL PM [DIPHENHYDRAMINE HYDROCHLORIDE;IBUPROFEN] [Concomitant]
     Indication: SLEEP DISORDER
     Dosage: 200 MG, 1X/DAY
     Dates: start: 2015
  3. ADVIL PM [DIPHENHYDRAMINE HYDROCHLORIDE;IBUPROFEN] [Concomitant]
     Dosage: UNK
     Dates: start: 2015
  4. ADVIL LIQUI-GELS [Suspect]
     Active Substance: IBUPROFEN
     Indication: BACK PAIN
     Dosage: 200 MG, 1X/DAY
     Dates: start: 2009

REACTIONS (2)
  - Movement disorder [Recovered/Resolved]
  - Drug ineffective [Recovered/Resolved]

NARRATIVE: CASE EVENT DATE: 2009
